FAERS Safety Report 6581518-2 (Version None)
Quarter: 2010Q1

REPORT INFORMATION
  Report Type: 
  Country: None (occurrence: None)
  Receive Date: 20100203
  Receipt Date: 20100121
  Transmission Date: 20100710
  Serious: Yes (Hospitalization)
  Sender: FDA-Public Use
  Company Number: CV20100041

PATIENT
  Age: 70 Year
  Sex: Female

DRUGS (14)
  1. CEFTRIAXON (MANUFACTURER UNKNOWN) [Suspect]
     Indication: PNEUMONIA
  2. AMITRIPTLINE HCL [Concomitant]
  3. ENALAPRIL MALEATE [Concomitant]
  4. GLYBURIDE [Concomitant]
  5. VERAPAMIL [Concomitant]
  6. OMEPRAZOLE [Concomitant]
  7. ASPIRIN [Concomitant]
  8. SIMVASTATIN [Concomitant]
  9. THEOPHYLLINE [Concomitant]
  10. FUROSEMIDE (FUROSEMIDE) (FUROSEMIDE) [Concomitant]
  11. METFORMIN HCL [Concomitant]
  12. CITOPRAM (CITALOPRAM HYDROBROMIDE) (CITALOPRAM HYDROBROMIDE) [Concomitant]
  13. DORZOLAMIDE HYDROCHLORIDE (DORZOLAMIDE HYDROCHLORIDE) [Concomitant]
  14. LATANOPROST [Concomitant]

REACTIONS (3)
  - BURNS SECOND DEGREE [None]
  - DISORIENTATION [None]
  - TOXIC EPIDERMAL NECROLYSIS [None]
